FAERS Safety Report 6593628-4 (Version None)
Quarter: 2010Q1

REPORT INFORMATION
  Report Type: 
  Country: None (occurrence: None)
  Receive Date: 20100222
  Receipt Date: 20090914
  Transmission Date: 20100710
  Serious: No
  Sender: FDA-Public Use
  Company Number: US-BRISTOL-MYERS SQUIBB COMPANY-14779110

PATIENT

DRUGS (1)
  1. ORENCIA [Suspect]
     Dosage: 2ND INFUSION

REACTIONS (2)
  - DIZZINESS [None]
  - HEADACHE [None]
